FAERS Safety Report 8177923-3 (Version None)
Quarter: 2012Q1

REPORT INFORMATION
  Report Type: 
  Country: None (occurrence: None)
  Receive Date: 20120130
  Receipt Date: 20110428
  Transmission Date: 20120608
  Serious: Yes (Hospitalization)
  Sender: FDA-Public Use
  Company Number: 032065

PATIENT
  Age: 33 Year
  Sex: Female

DRUGS (3)
  1. VALIUM [Concomitant]
  2. CELEXA [Concomitant]
  3. KEPPRA [Suspect]
     Indication: EPILEPSY
     Dosage: (750 MG ORAL)
     Route: 048
     Dates: start: 20110321

REACTIONS (1)
  - MAJOR DEPRESSION [None]
